FAERS Safety Report 14075099 (Version 3)
Quarter: 2018Q1

REPORT INFORMATION
  Report Type: Spontaneous
  Country: LT (occurrence: LT)
  Receive Date: 20171011
  Receipt Date: 20180315
  Transmission Date: 20180508
  Serious: Yes (Hospitalization, Other)
  Sender: FDA-Public Use
  Company Number: LT-PFIZER INC-2017431579

PATIENT
  Age: 74 Year
  Sex: Female

DRUGS (25)
  1. METHYLPREDNISOLONE SODIUM SUCCINATE. [Suspect]
     Active Substance: METHYLPREDNISOLONE SODIUM SUCCINATE
     Dosage: 500 MG, WEEKLY
     Route: 042
  2. THIAMAZOLE [Interacting]
     Active Substance: METHIMAZOLE
     Dosage: 5 MG, 2X/DAY
     Dates: start: 20150305
  3. THIAMAZOLE [Interacting]
     Active Substance: METHIMAZOLE
     Dosage: UNK (CUMULATIVE DOSE 8010MG)
     Dates: start: 20150319
  4. THIAMAZOLE [Interacting]
     Active Substance: METHIMAZOLE
     Dosage: UNK  (CUMULATIVE DOSE 62.43 WKS, 8190 MG)
     Dates: start: 20150409
  5. METHYLPREDNISOLONE SODIUM SUCCINATE. [Interacting]
     Active Substance: METHYLPREDNISOLONE SODIUM SUCCINATE
     Dosage: 500 MG, UNK (INFUSION TWICE)
     Route: 042
     Dates: start: 20150227
  6. THIAMAZOLE [Interacting]
     Active Substance: METHIMAZOLE
     Dosage: 10 MG, DAILY (MAINTENANCE DOSE)
     Route: 048
  7. THIAMAZOLE [Interacting]
     Active Substance: METHIMAZOLE
     Dosage: UNK, (CUMULATIVE DOSE 8207.5MG)
     Dates: start: 20150416
  8. METHYLPREDNISOLONE SODIUM SUCCINATE. [Interacting]
     Active Substance: METHYLPREDNISOLONE SODIUM SUCCINATE
     Dosage: 500 MG, UNK (INFUSION)
     Route: 042
     Dates: start: 20150326
  9. THIAMAZOLE [Interacting]
     Active Substance: METHIMAZOLE
     Dosage: 2.5 MG, DAILY
  10. THIAMAZOLE [Interacting]
     Active Substance: METHIMAZOLE
     Dosage: 5 MG, 2X/DAY  (CUMULATIVE DOSE-7870MG OVER 57.29 WKS)
     Dates: start: 20150226
  11. METHYLPREDNISOLONE SODIUM SUCCINATE. [Interacting]
     Active Substance: METHYLPREDNISOLONE SODIUM SUCCINATE
     Dosage: 250 MG, WEEKLY
     Route: 042
  12. METHYLPREDNISOLONE SODIUM SUCCINATE. [Interacting]
     Active Substance: METHYLPREDNISOLONE SODIUM SUCCINATE
     Dosage: 500 MG, UNK (INFUSION)
     Route: 042
     Dates: start: 20150305
  13. THIAMAZOLE [Interacting]
     Active Substance: METHIMAZOLE
     Dosage: 5 MG, 1X/DAY (CUMULATIVE DOSE 8090MG) (DOSE REDUCTION TO 5 MG ONCE DAILY)
     Dates: start: 20150326
  14. METHYLPREDNISOLONE SODIUM SUCCINATE. [Interacting]
     Active Substance: METHYLPREDNISOLONE SODIUM SUCCINATE
     Dosage: 500 MG, UNK (INFUSION)
     Route: 042
     Dates: start: 20150312
  15. THIAMAZOLE [Interacting]
     Active Substance: METHIMAZOLE
     Indication: BASEDOW^S DISEASE
     Dosage: 30 MG, DAILY
  16. THIAMAZOLE [Interacting]
     Active Substance: METHIMAZOLE
     Dosage: 5 MG, 1X/DAY  (DOSE REDUCED)
  17. METHYLPREDNISOLONE SODIUM SUCCINATE. [Interacting]
     Active Substance: METHYLPREDNISOLONE SODIUM SUCCINATE
     Dosage: 500 MG, UNK (INFUSION)
     Route: 042
     Dates: start: 20150416
  18. THIAMAZOLE [Interacting]
     Active Substance: METHIMAZOLE
     Dosage: UNK, (CUMULATIVE DOSE 8225MG)
     Dates: start: 20150423
  19. METHYLPREDNISOLONE SODIUM SUCCINATE. [Interacting]
     Active Substance: METHYLPREDNISOLONE SODIUM SUCCINATE
     Dosage: 500 MG, UNK (INFUSION TWICE)
     Route: 042
     Dates: start: 20150302
  20. METHYLPREDNISOLONE SODIUM SUCCINATE. [Interacting]
     Active Substance: METHYLPREDNISOLONE SODIUM SUCCINATE
     Dosage: 500 MG, UNK (INFUSION)
     Route: 042
     Dates: start: 20150319
  21. METHYLPREDNISOLONE SODIUM SUCCINATE. [Interacting]
     Active Substance: METHYLPREDNISOLONE SODIUM SUCCINATE
     Dosage: 500 MG, UNK (INFUSION)
     Route: 042
     Dates: start: 20150423
  22. THIAMAZOLE [Interacting]
     Active Substance: METHIMAZOLE
     Dosage: UNK (CUMULATIVE DOSE 7900MG)
     Dates: start: 20150312
  23. THIAMAZOLE [Interacting]
     Active Substance: METHIMAZOLE
     Dosage: UNK (CUMULATIVE DOSE 8150MG)
     Dates: start: 20150402
  24. METHYLPREDNISOLONE SODIUM SUCCINATE. [Interacting]
     Active Substance: METHYLPREDNISOLONE SODIUM SUCCINATE
     Dosage: 500 MG, UNK (INFUSION)
     Route: 042
     Dates: start: 20150402
  25. METHYLPREDNISOLONE SODIUM SUCCINATE. [Interacting]
     Active Substance: METHYLPREDNISOLONE SODIUM SUCCINATE
     Dosage: 500 MG, UNK (INFUSION)
     Route: 042
     Dates: start: 20150409

REACTIONS (2)
  - Drug interaction [Recovering/Resolving]
  - Drug-induced liver injury [Recovering/Resolving]
